FAERS Safety Report 17235942 (Version 1)
Quarter: 2020Q1

REPORT INFORMATION
  Report Type: Spontaneous
  Country: JP (occurrence: JP)
  Receive Date: 20200106
  Receipt Date: 20200106
  Transmission Date: 20200409
  Serious: Yes (Other)
  Sender: FDA-Public Use
  Company Number: JP-ACTELION-A-CH2017-156702

PATIENT
  Age: 43 Year
  Sex: Female

DRUGS (15)
  1. CELLCEPT [Concomitant]
     Active Substance: MYCOPHENOLATE MOFETIL\MYCOPHENOLATE MOFETIL HYDROCHLORIDE
  2. OPSUMIT [Suspect]
     Active Substance: MACITENTAN
     Dosage: 5 MG, QD
     Route: 048
     Dates: start: 20170525, end: 20170606
  3. OPSUMIT [Suspect]
     Active Substance: MACITENTAN
     Dosage: UNK
     Route: 048
     Dates: start: 20170704
  4. UPTRAVI [Suspect]
     Active Substance: SELEXIPAG
     Indication: PULMONARY ARTERIAL HYPERTENSION
     Dosage: 0.8 MG, QD
     Route: 048
     Dates: start: 20170704, end: 20170704
  5. REVATIO [Suspect]
     Active Substance: SILDENAFIL CITRATE
     Dosage: 60 MG, QD
     Route: 048
     Dates: start: 20170627
  6. BERASUS [Concomitant]
     Active Substance: BERAPROST SODIUM
  7. REVATIO [Suspect]
     Active Substance: SILDENAFIL CITRATE
     Dosage: 30 MG, QD
     Route: 048
     Dates: start: 20170627
  8. BERAPROST [Concomitant]
     Active Substance: BERAPROST
     Dosage: 60 MCG, QD
  9. NEORAL [Concomitant]
     Active Substance: CYCLOSPORINE
  10. MYCOPHENOLATE MOFETIL. [Concomitant]
     Active Substance: MYCOPHENOLATE MOFETIL
  11. OPSUMIT [Suspect]
     Active Substance: MACITENTAN
     Indication: PULMONARY ARTERIAL HYPERTENSION
     Dosage: 10 MG, QD
     Route: 048
     Dates: start: 20170524
  12. ADEMPAS [Concomitant]
     Active Substance: RIOCIGUAT
  13. REVATIO [Suspect]
     Active Substance: SILDENAFIL CITRATE
     Indication: PULMONARY ARTERIAL HYPERTENSION
     Dosage: 20 MG, UNK
     Route: 048
     Dates: start: 20170627
  14. BERAPROST [Concomitant]
     Active Substance: BERAPROST
     Dosage: 40 MCG, QD
  15. OPSUMIT [Suspect]
     Active Substance: MACITENTAN
     Dosage: 10 MG, QD
     Route: 048
     Dates: start: 20170607

REACTIONS (7)
  - Hypotension [Unknown]
  - Headache [Recovered/Resolved]
  - Vomiting [Unknown]
  - Feeling abnormal [Recovered/Resolved]
  - Nausea [Unknown]
  - Movement disorder [Unknown]
  - Pulmonary arterial pressure increased [Recovering/Resolving]

NARRATIVE: CASE EVENT DATE: 20170524
